FAERS Safety Report 18589609 (Version 1)
Quarter: 2020Q4

REPORT INFORMATION
  Report Type: Report from Study
  Country: US (occurrence: US)
  Receive Date: 20201208
  Receipt Date: 20201208
  Transmission Date: 20210114
  Serious: Yes (Death)
  Sender: FDA-Public Use
  Company Number: US-ASTRAZENECA-2020SF61769

PATIENT
  Age: 16432 Day
  Sex: Female
  Weight: 64 kg

DRUGS (1)
  1. LYNPARZA [Suspect]
     Active Substance: OLAPARIB
     Indication: BREAST CANCER STAGE IV
     Route: 048
     Dates: start: 20201015

REACTIONS (1)
  - Death [Fatal]

NARRATIVE: CASE EVENT DATE: 20201031
